FAERS Safety Report 10039236 (Version 1)
Quarter: 2014Q1

REPORT INFORMATION
  Report Type: Spontaneous
  Country: US (occurrence: US)
  Receive Date: 20140326
  Receipt Date: 20140326
  Transmission Date: 20141002
  Serious: Yes (Other)
  Sender: FDA-Public Use
  Company Number: ALCN2014US001775

PATIENT
  Age: 93 Year
  Sex: Female

DRUGS (2)
  1. TRAVATAN Z [Suspect]
     Indication: GLAUCOMA
     Dosage: 1 UNK, UNK
     Route: 047
  2. BRIMONIDINE [Concomitant]
     Indication: GLAUCOMA
     Dosage: 1 GTT, QD

REACTIONS (3)
  - Ocular hyperaemia [Not Recovered/Not Resolved]
  - Eye infection [Not Recovered/Not Resolved]
  - Purulent discharge [Not Recovered/Not Resolved]
